FAERS Safety Report 24142144 (Version 1)
Quarter: 2024Q3

REPORT INFORMATION
  Report Type: Spontaneous
  Country: ES (occurrence: ES)
  Receive Date: 20240726
  Receipt Date: 20240726
  Transmission Date: 20241017
  Serious: Yes (Hospitalization, Other)
  Sender: FRESENIUS KABI
  Company Number: ES-HALEON-2186853

PATIENT
  Age: 67 Year
  Sex: Female
  Weight: 69.1 kg

DRUGS (56)
  1. ACETAMINOPHEN [Suspect]
     Active Substance: ACETAMINOPHEN
     Indication: Product used for unknown indication
     Dosage: UNK?FORM OF ADMIN: UNKNOWN
     Route: 065
     Dates: start: 20240408, end: 20240408
  2. ACETAMINOPHEN [Suspect]
     Active Substance: ACETAMINOPHEN
     Dosage: 1000.000MG?FORM OF ADMIN: UNKNOWN
     Route: 065
     Dates: start: 20240408, end: 20240408
  3. ACETAMINOPHEN [Suspect]
     Active Substance: ACETAMINOPHEN
     Dosage: 1000.000MG?FORM OF ADMIN: UNKNOWN
     Route: 065
     Dates: start: 20240425
  4. ACETAMINOPHEN [Suspect]
     Active Substance: ACETAMINOPHEN
     Dosage: UNK?FORM OF ADMIN: UNKNOWN
     Route: 065
     Dates: start: 20240226
  5. ETOPOSIDE [Suspect]
     Active Substance: ETOPOSIDE
     Indication: Diffuse large B-cell lymphoma stage I
     Dosage: 50.000MG/M2?FOA: UNKNOWN
     Route: 042
     Dates: start: 20240320, end: 20240322
  6. ETOPOSIDE [Suspect]
     Active Substance: ETOPOSIDE
     Dosage: UNK
     Route: 042
     Dates: start: 20240205, end: 20240207
  7. ETOPOSIDE [Suspect]
     Active Substance: ETOPOSIDE
     Dosage: 50 MG/M2, AS A PART OF R-ICE REGIMEN?FOA: UNKNOWN
     Route: 065
     Dates: start: 20240425
  8. ETOPOSIDE [Suspect]
     Active Substance: ETOPOSIDE
     Dosage: 50 MG/M2?FOA: UNKNOWN
     Route: 042
     Dates: start: 20240423, end: 20240425
  9. TRIMETHOPRIM [Suspect]
     Active Substance: TRIMETHOPRIM
     Indication: Product used for unknown indication
     Route: 065
     Dates: start: 20240226
  10. TRIMETHOPRIM [Suspect]
     Active Substance: TRIMETHOPRIM
     Dosage: UNK
     Route: 065
     Dates: start: 20240226
  11. TRIMETHOPRIM [Suspect]
     Active Substance: TRIMETHOPRIM
     Route: 065
     Dates: start: 20240226
  12. TRIMETHOPRIM [Suspect]
     Active Substance: TRIMETHOPRIM
     Route: 065
     Dates: start: 20240226
  13. RITUXIMAB [Suspect]
     Active Substance: RITUXIMAB
     Indication: Diffuse large B-cell lymphoma stage I
     Dosage: 375 MG/M2?FOA: SOLUTION FOR INFUSION
     Route: 042
     Dates: start: 20240424
  14. RITUXIMAB [Suspect]
     Active Substance: RITUXIMAB
     Dosage: UNK?FOA: SOLUTION FOR INFUSION
     Route: 042
     Dates: start: 20240205, end: 20240205
  15. RITUXIMAB [Suspect]
     Active Substance: RITUXIMAB
     Dosage: 375.000MG/M2?FOA: SOLUTION FOR INFUSION
     Route: 042
     Dates: start: 20240320, end: 20240320
  16. RITUXIMAB [Suspect]
     Active Substance: RITUXIMAB
     Dosage: 375 MG/M2?FOA: SOLUTION FOR INFUSION
     Route: 042
     Dates: start: 20240423
  17. EPCORITAMAB [Suspect]
     Active Substance: EPCORITAMAB
     Indication: Diffuse large B-cell lymphoma stage I
     Dosage: 48 MG/M2?FOA: INFUSION
     Route: 058
     Dates: start: 20240425
  18. EPCORITAMAB [Suspect]
     Active Substance: EPCORITAMAB
     Dosage: UNK?FOA: INFUSION
     Route: 058
     Dates: start: 20240314, end: 20240314
  19. EPCORITAMAB [Suspect]
     Active Substance: EPCORITAMAB
     Dosage: UNK?FOA: INFUSION
     Route: 058
     Dates: start: 20240322, end: 20240322
  20. EPCORITAMAB [Suspect]
     Active Substance: EPCORITAMAB
     Dosage: 0.800MG?FOA: INFUSION
     Dates: start: 20240229, end: 20240229
  21. EPCORITAMAB [Suspect]
     Active Substance: EPCORITAMAB
     Dosage: 0.160MG?FOA: INFUSION
     Route: 058
     Dates: start: 20240207, end: 20240207
  22. EPCORITAMAB [Suspect]
     Active Substance: EPCORITAMAB
     Dosage: UNK?FOA: INFUSION
     Route: 058
     Dates: start: 20240410
  23. EPCORITAMAB [Suspect]
     Active Substance: EPCORITAMAB
     Dosage: 48.000MG?FOA: INFUSION
     Dates: start: 20240418
  24. EPCORITAMAB [Suspect]
     Active Substance: EPCORITAMAB
     Dosage: FOA: INFUSION
     Route: 058
     Dates: start: 20240307, end: 20240307
  25. ACYCLOVIR [Suspect]
     Active Substance: ACYCLOVIR
     Indication: Product used for unknown indication
     Dosage: UNK
     Route: 065
     Dates: start: 2023
  26. APIXABAN [Suspect]
     Active Substance: APIXABAN
     Indication: Product used for unknown indication
     Dosage: UNK
     Route: 065
     Dates: start: 20240226
  27. CALCIUM [Suspect]
     Active Substance: CALCIUM
     Indication: Product used for unknown indication
     Dosage: UNK
     Route: 065
     Dates: start: 20240226
  28. LORAZEPAM [Suspect]
     Active Substance: LORAZEPAM
     Indication: Product used for unknown indication
     Dosage: UNK
     Route: 065
     Dates: start: 202301
  29. ERGOCALCIFEROL [Suspect]
     Active Substance: ERGOCALCIFEROL
     Indication: Product used for unknown indication
     Dosage: UNK
     Route: 065
     Dates: start: 20240226
  30. CARBOPLATIN [Suspect]
     Active Substance: CARBOPLATIN
     Indication: Diffuse large B-cell lymphoma stage I
     Dosage: UNK
     Route: 042
     Dates: start: 20240206, end: 20240206
  31. CARBOPLATIN [Suspect]
     Active Substance: CARBOPLATIN
     Dosage: UNK
     Dates: start: 20240424
  32. CARBOPLATIN [Suspect]
     Active Substance: CARBOPLATIN
     Dosage: 5.000MG/M2
     Dates: start: 20240321, end: 20240321
  33. PREGABALIN [Suspect]
     Active Substance: PREGABALIN
     Indication: Product used for unknown indication
     Dosage: UNK?FOA: UNKNOWN
     Route: 065
     Dates: start: 20240226
  34. DEXCHLORPHENIRAMINE [Suspect]
     Active Substance: DEXCHLORPHENIRAMINE
     Indication: Product used for unknown indication
     Dosage: 2.000MG
     Route: 065
     Dates: start: 20240408, end: 20240408
  35. DEXCHLORPHENIRAMINE [Suspect]
     Active Substance: DEXCHLORPHENIRAMINE
     Dosage: UNK
     Route: 065
     Dates: start: 20240418
  36. DEXCHLORPHENIRAMINE [Suspect]
     Active Substance: DEXCHLORPHENIRAMINE
     Dosage: 12.000MG
     Route: 065
     Dates: start: 20240425
  37. DEXCHLORPHENIRAMINE [Suspect]
     Active Substance: DEXCHLORPHENIRAMINE
     Dosage: UNK
     Route: 065
     Dates: start: 20240408, end: 20240408
  38. DEXCHLORPHENIRAMINE [Suspect]
     Active Substance: DEXCHLORPHENIRAMINE
     Dosage: UNK
     Route: 065
     Dates: start: 20240425
  39. OMEPRAZOLE [Suspect]
     Active Substance: OMEPRAZOLE
     Indication: Product used for unknown indication
     Dosage: UNK
     Route: 065
     Dates: start: 2023
  40. IFOSFAMIDE [Suspect]
     Active Substance: IFOSFAMIDE
     Indication: Diffuse large B-cell lymphoma stage I
     Dosage: 5 MG/M2
     Route: 042
     Dates: start: 20240424, end: 20240425
  41. IFOSFAMIDE [Suspect]
     Active Substance: IFOSFAMIDE
     Dosage: 5.000MG/M2
     Route: 042
     Dates: start: 20240321, end: 20240322
  42. IFOSFAMIDE [Suspect]
     Active Substance: IFOSFAMIDE
     Dosage: UNK
     Route: 042
     Dates: start: 20240206, end: 20240207
  43. ONDANSETRON [Concomitant]
     Active Substance: ONDANSETRON
     Indication: Product used for unknown indication
     Dosage: UNK
     Route: 065
     Dates: start: 20240506, end: 20240509
  44. TAZOBACTAM [Concomitant]
     Active Substance: TAZOBACTAM
     Indication: Product used for unknown indication
     Dosage: UNK
     Route: 065
     Dates: start: 20240506, end: 20240509
  45. METAMIZOLE [Concomitant]
     Active Substance: METAMIZOLE
     Indication: Product used for unknown indication
     Dosage: UNK
     Route: 065
     Dates: start: 20240506, end: 20240506
  46. PIPERACILLIN [Concomitant]
     Active Substance: PIPERACILLIN
     Indication: Product used for unknown indication
     Dosage: UNK
     Route: 065
     Dates: start: 20240506, end: 20240506
  47. TRAMADOL [Concomitant]
     Active Substance: TRAMADOL\TRAMADOL HYDROCHLORIDE
     Indication: Product used for unknown indication
     Dosage: UNK
     Route: 065
     Dates: start: 20240226
  48. TRAMADOL [Concomitant]
     Active Substance: TRAMADOL\TRAMADOL HYDROCHLORIDE
     Dosage: UNK
     Route: 065
     Dates: start: 20240226
  49. TRAMADOL [Concomitant]
     Active Substance: TRAMADOL\TRAMADOL HYDROCHLORIDE
     Dosage: UNK
     Route: 065
     Dates: start: 20240226
  50. TRAMADOL [Concomitant]
     Active Substance: TRAMADOL\TRAMADOL HYDROCHLORIDE
     Route: 065
     Dates: start: 20240226
  51. METOCLOPRAMIDE HYDROCHLORIDE [Concomitant]
     Active Substance: METOCLOPRAMIDE HYDROCHLORIDE
     Indication: Product used for unknown indication
     Dosage: UNK
     Route: 065
     Dates: start: 20240506, end: 20240509
  52. MAGNESIUM SULFATE [Concomitant]
     Active Substance: MAGNESIUM SULFATE\MAGNESIUM SULFATE HEPTAHYDRATE
     Indication: Product used for unknown indication
     Dosage: UNK
     Route: 065
     Dates: start: 20240506, end: 20240506
  53. SULFAMETHOXAZOLE [Concomitant]
     Active Substance: SULFAMETHOXAZOLE
     Indication: Product used for unknown indication
     Route: 065
     Dates: start: 20240226
  54. SULFAMETHOXAZOLE [Concomitant]
     Active Substance: SULFAMETHOXAZOLE
     Dosage: UNKNOWN
     Route: 065
     Dates: start: 20240226
  55. SULFAMETHOXAZOLE [Concomitant]
     Active Substance: SULFAMETHOXAZOLE
     Dosage: UNKNOWN
     Route: 065
     Dates: start: 20240226
  56. SULFAMETHOXAZOLE [Concomitant]
     Active Substance: SULFAMETHOXAZOLE
     Route: 065
     Dates: start: 20240226

REACTIONS (1)
  - Febrile neutropenia [Recovered/Resolved]

NARRATIVE: CASE EVENT DATE: 20240506
